FAERS Safety Report 16878419 (Version 4)
Quarter: 2020Q3

REPORT INFORMATION
  Report Type: Spontaneous
  Country: US (occurrence: US)
  Receive Date: 20191002
  Receipt Date: 20200730
  Transmission Date: 20201102
  Serious: Yes (Hospitalization, Other)
  Sender: FDA-Public Use
  Company Number: US-STRONGBRIDGE BIOPHARMA-2019-STR-000248

PATIENT
  Sex: Female

DRUGS (3)
  1. KEVEYIS [Suspect]
     Active Substance: DICHLORPHENAMIDE
     Dosage: 50 MG, BID
     Route: 048
     Dates: start: 20180303
  2. KEVEYIS [Suspect]
     Active Substance: DICHLORPHENAMIDE
     Indication: FAMILIAL PERIODIC PARALYSIS
     Dosage: 75 MG, BID
     Route: 048
  3. KEVEYIS [Suspect]
     Active Substance: DICHLORPHENAMIDE
     Dosage: 50 MG, BID
     Route: 048
     Dates: start: 20180303

REACTIONS (10)
  - Malaise [Unknown]
  - Muscular weakness [Unknown]
  - Pain [Unknown]
  - Blood potassium decreased [Not Recovered/Not Resolved]
  - Wrong technique in product usage process [Unknown]
  - Stress [Not Recovered/Not Resolved]
  - Surgery [Not Recovered/Not Resolved]
  - Blood potassium decreased [Recovered/Resolved]
  - Therapeutic product effect decreased [Unknown]
  - Nephrolithiasis [Recovered/Resolved]
